FAERS Safety Report 12682866 (Version 2)
Quarter: 2016Q4

REPORT INFORMATION
  Report Type: Spontaneous
  Country: NO (occurrence: NO)
  Receive Date: 20160825
  Receipt Date: 20161028
  Transmission Date: 20170207
  Serious: Yes (Other)
  Sender: FDA-Public Use
  Company Number: NO-ROCHE-1819413

PATIENT
  Sex: Female

DRUGS (6)
  1. ESBRIET [Suspect]
     Active Substance: PIRFENIDONE
     Indication: IDIOPATHIC PULMONARY FIBROSIS
     Dosage: 9 CAPSULES PER DAY
     Route: 048
     Dates: start: 201310, end: 201606
  2. MUCOMYST [Concomitant]
     Active Substance: ACETYLCYSTEINE
  3. ESBRIET [Suspect]
     Active Substance: PIRFENIDONE
     Dosage: 9 CAPSULES PER DAY
     Route: 048
     Dates: end: 201606
  4. ZANIDIP [Concomitant]
     Active Substance: LERCANIDIPINE HYDROCHLORIDE
  5. DIOVAN [Concomitant]
     Active Substance: VALSARTAN
  6. ALBYL-E [Concomitant]
     Active Substance: ASPIRIN\MAGNESIUM OXIDE

REACTIONS (8)
  - Noninfective gingivitis [Unknown]
  - Lip ulceration [Unknown]
  - Skin ulcer [Unknown]
  - Gingivitis [Unknown]
  - Stomatitis [Unknown]
  - Rash pruritic [Unknown]
  - Skin exfoliation [Unknown]
  - Lip swelling [Unknown]
